FAERS Safety Report 7860316-3 (Version None)
Quarter: 2011Q4

REPORT INFORMATION
  Report Type: 
  Country: None (occurrence: None)
  Receive Date: 20111027
  Receipt Date: 20111018
  Transmission Date: 20120403
  Serious: Yes (Hospitalization)
  Sender: FDA-Public Use
  Company Number: US-BAXTER-2011BH032861

PATIENT
  Age: 58 Year
  Sex: Female

DRUGS (1)
  1. DIANEAL [Suspect]
     Indication: PERITONEAL DIALYSIS
     Route: 033

REACTIONS (6)
  - DYSPNOEA [None]
  - ULTRAFILTRATION FAILURE [None]
  - DIARRHOEA [None]
  - ABDOMINAL PAIN [None]
  - FLUID OVERLOAD [None]
  - ABDOMINAL DISTENSION [None]
